FAERS Safety Report 13731839 (Version 2)
Quarter: 2017Q3

REPORT INFORMATION
  Report Type: Spontaneous
  Country: BR (occurrence: BR)
  Receive Date: 20170707
  Receipt Date: 20170825
  Transmission Date: 20171127
  Serious: Yes (Hospitalization, Other)
  Sender: FDA-Public Use
  Company Number: BR-PFIZER INC-2017275107

PATIENT
  Age: 18 Year
  Sex: Female

DRUGS (4)
  1. DOSTINEX [Suspect]
     Active Substance: CABERGOLINE
     Dosage: 2 TABLET, WEEKLY
  2. DOSTINEX [Suspect]
     Active Substance: CABERGOLINE
     Indication: BLOOD PROLACTIN INCREASED
     Dosage: 3 MG/WEEK
     Dates: start: 2004, end: 2004
  3. DOSTINEX [Suspect]
     Active Substance: CABERGOLINE
     Dosage: 6 TABLET, WEEKLY
  4. DOSTINEX [Suspect]
     Active Substance: CABERGOLINE
     Dosage: 8 TABLET PER WEEK
     Dates: start: 2004

REACTIONS (1)
  - Pituitary tumour benign [Not Recovered/Not Resolved]

NARRATIVE: CASE EVENT DATE: 2004
